FAERS Safety Report 14542888 (Version 1)
Quarter: 2018Q1

REPORT INFORMATION
  Report Type: Spontaneous
  Country: IN (occurrence: IN)
  Receive Date: 20180216
  Receipt Date: 20180216
  Transmission Date: 20180509
  Serious: Yes (Hospitalization, Other)
  Sender: FDA-Public Use
  Company Number: IN-IMPAX LABORATORIES, INC-2018-IPXL-00477

PATIENT
  Age: 34 Year
  Sex: Male

DRUGS (3)
  1. NICORANDIL [Suspect]
     Active Substance: NICORANDIL
     Indication: CARDIOVASCULAR DISORDER
     Dosage: UNK
     Route: 022
  2. ADRENACLICK [Suspect]
     Active Substance: EPINEPHRINE
     Indication: CARDIOVASCULAR DISORDER
     Dosage: UNK
     Route: 022
  3. NITROPRUSSIDE [Suspect]
     Active Substance: NITROPRUSSIDE
     Indication: CARDIOVASCULAR DISORDER
     Dosage: UNK
     Route: 022

REACTIONS (2)
  - Cardiac arrest [Recovering/Resolving]
  - Atrioventricular block complete [Recovering/Resolving]
